FAERS Safety Report 8924049 (Version 1)
Quarter: 2012Q4

REPORT INFORMATION
  Report Type: Spontaneous
  Country: US (occurrence: None)
  Receive Date: 20121121
  Receipt Date: 20121121
  Transmission Date: 20130627
  Serious: Yes (Life-Threatening)
  Sender: FDA-Public Use
  Company Number: None

PATIENT
  Age: 49 Year
  Sex: Female

DRUGS (1)
  1. ENBREL SURECLICK 50MG AMGEN INC [Suspect]
     Route: 058
     Dates: start: 20120705

REACTIONS (5)
  - Heart rate increased [None]
  - Blood pressure increased [None]
  - Dyspnoea [None]
  - Fear [None]
  - Nervousness [None]
